FAERS Safety Report 6931557-4 (Version None)
Quarter: 2010Q3

REPORT INFORMATION
  Report Type: 
  Country: None (occurrence: None)
  Receive Date: 20100816
  Receipt Date: 20100802
  Transmission Date: 20110219
  Serious: Yes (Other)
  Sender: FDA-Public Use
  Company Number: 2010P1000681

PATIENT
  Age: 15 Year
  Sex: Female

DRUGS (3)
  1. METRONIDAZOLE [Suspect]
     Indication: CROHN'S DISEASE
  2. CON MED [Concomitant]
  3. PREV MEDS [Concomitant]

REACTIONS (3)
  - ATAXIA [None]
  - CEREBELLAR SYNDROME [None]
  - NUCLEAR MAGNETIC RESONANCE IMAGING BRAIN ABNORMAL [None]
